FAERS Safety Report 4987749-7 (Version None)
Quarter: 2006Q2

REPORT INFORMATION
  Report Type: 
  Country: None (occurrence: None)
  Receive Date: 20060428
  Receipt Date: 20060428
  Transmission Date: 20061013
  Serious: Yes (Death, Life-Threatening, Hospitalization)
  Sender: FDA-Public Use
  Company Number: None

PATIENT
  Age: 54 Year
  Sex: Male

DRUGS (2)
  1. ADALIMUMAB 40 MG EVERY 2     ABBOTT [Suspect]
     Indication: RHEUMATOID ARTHRITIS
     Dosage: 40 MG 2WEEKS SQ
     Route: 058
     Dates: start: 20051001, end: 20060209
  2. METHOTREXATE [Suspect]
     Dosage: 20 MG 8 TABS WEEKLY  PO
     Route: 048

REACTIONS (2)
  - DIFFUSE ALVEOLAR DAMAGE [None]
  - LUNG INFILTRATION [None]
